FAERS Safety Report 6545439-3 (Version None)
Quarter: 2010Q1

REPORT INFORMATION
  Report Type: 
  Country: None (occurrence: None)
  Receive Date: 20100121
  Receipt Date: 20100115
  Transmission Date: 20100710
  Serious: Yes (Other)
  Sender: FDA-Public Use
  Company Number: US-PFIZER INC-2010007257

PATIENT
  Age: 78 Year
  Sex: Female

DRUGS (3)
  1. LYRICA [Suspect]
     Indication: PAIN
     Dosage: 6 PILLS PER DAY
  2. LYRICA [Suspect]
     Indication: DIABETES MELLITUS
  3. CYMBALTA [Suspect]
     Dosage: UNK

REACTIONS (3)
  - BALANCE DISORDER [None]
  - DYSKINESIA [None]
  - NERVOUS SYSTEM DISORDER [None]
